FAERS Safety Report 23815432 (Version 1)
Quarter: 2024Q2

REPORT INFORMATION
  Report Type: Spontaneous
  Country: US (occurrence: US)
  Receive Date: 20240503
  Receipt Date: 20240503
  Transmission Date: 20240716
  Serious: Yes (Hospitalization, Other)
  Sender: FDA-Public Use
  Company Number: US-ELI_LILLY_AND_COMPANY-US202404016172

PATIENT
  Sex: Female

DRUGS (1)
  1. VERZENIO [Suspect]
     Active Substance: ABEMACICLIB
     Indication: Product used for unknown indication
     Dosage: 150 MG, BID
     Route: 065

REACTIONS (6)
  - Acute kidney injury [Unknown]
  - Biliary dilatation [Unknown]
  - Cholelithiasis [Unknown]
  - Pelvic mass [Unknown]
  - Arthralgia [Recovering/Resolving]
  - Leukopenia [Unknown]
